FAERS Safety Report 4619173-0 (Version None)
Quarter: 2005Q1

REPORT INFORMATION
  Report Type: 
  Country: None (occurrence: None)
  Receive Date: 20050325
  Receipt Date: 20050318
  Transmission Date: 20050727
  Serious: Yes (Other)
  Sender: FDA-Public Use
  Company Number: US-BRISTOL-MYERS SQUIBB COMPANY-12903712

PATIENT
  Sex: Male

DRUGS (1)
  1. CETUXIMAB [Suspect]
     Indication: HEPATIC NEOPLASM MALIGNANT
     Route: 042

REACTIONS (4)
  - EYE PRURITUS [None]
  - GLOSSODYNIA [None]
  - LIP DISCOLOURATION [None]
  - RASH [None]
